FAERS Safety Report 11685633 (Version 4)
Quarter: 2016Q1

REPORT INFORMATION
  Report Type: Spontaneous
  Country: BE (occurrence: BE)
  Receive Date: 20151030
  Receipt Date: 20160217
  Transmission Date: 20160525
  Serious: Yes (Other)
  Sender: FDA-Public Use
  Company Number: BE-WATSON-2015-20159

PATIENT
  Age: 25 Year
  Sex: Male

DRUGS (15)
  1. PIROXICAM. [Concomitant]
     Active Substance: PIROXICAM
     Indication: POLYCHONDRITIS
     Dosage: 20 MG DAILY
     Route: 065
     Dates: start: 2003
  2. METHOTREXATE (METHOTREXATE SODIUM) [Suspect]
     Active Substance: METHOTREXATE SODIUM
     Indication: POLYCHONDRITIS
     Dosage: 15 MG, 1/WEEK
     Route: 065
     Dates: start: 2011
  3. PREDNISOLONE (UNKNOWN) [Suspect]
     Active Substance: PREDNISOLONE
     Dosage: 10 MG/DAY
     Route: 065
     Dates: start: 2011
  4. CYCLOSPORINE (UNKNOWN) [Suspect]
     Active Substance: CYCLOSPORINE
     Indication: POLYCHONDRITIS
     Dosage: 2X100 MG/DAY
     Route: 065
     Dates: start: 2007
  5. PREDNISOLONE (UNKNOWN) [Suspect]
     Active Substance: PREDNISOLONE
     Dosage: 20 MG/DAY
     Route: 065
     Dates: start: 2011
  6. CYCLOPHOSPHAMIDE (UNKNOWN) [Suspect]
     Active Substance: CYCLOPHOSPHAMIDE
     Indication: POLYCHONDRITIS
     Dosage: 500 MG, EVERY 3 WEEKS
     Route: 042
     Dates: start: 2011
  7. METHOTREXATE (METHOTREXATE SODIUM) [Suspect]
     Active Substance: METHOTREXATE SODIUM
     Dosage: 10 MG WEEKLY
     Route: 065
     Dates: start: 2006
  8. PREDNISOLONE (UNKNOWN) [Suspect]
     Active Substance: PREDNISOLONE
     Dosage: 20 MG/DAY
     Route: 065
     Dates: start: 201105
  9. INFLIXIMAB [Suspect]
     Active Substance: INFLIXIMAB
     Indication: POLYCHONDRITIS
     Dosage: 5 MG/KG EIGHT TIMES WEEKLY
     Route: 065
     Dates: start: 201105
  10. ETANERCEPT [Concomitant]
     Active Substance: ETANERCEPT
     Indication: POLYCHONDRITIS
     Dosage: 50 MG, ONCE A WEEK
     Route: 058
     Dates: start: 200305
  11. INFLIXIMAB [Suspect]
     Active Substance: INFLIXIMAB
     Dosage: 5 MG/KG, UNKNOWN, FOUR TIMES WEEKLY
     Route: 065
     Dates: start: 2011
  12. METHYLPREDNISOLONE (UNKNOWN) [Suspect]
     Active Substance: METHYLPREDNISOLONE
     Indication: POLYCHONDRITIS
     Dosage: 16 MG DAILY
     Route: 065
     Dates: start: 2006
  13. PREDNISOLONE (UNKNOWN) [Suspect]
     Active Substance: PREDNISOLONE
     Indication: POLYCHONDRITIS
     Dosage: 10 MG/DAY
     Route: 065
     Dates: start: 2007
  14. PREDNISOLONE (UNKNOWN) [Suspect]
     Active Substance: PREDNISOLONE
     Dosage: 20 MG/DAY
     Route: 065
     Dates: start: 2011
  15. SULFASALAZINE. [Concomitant]
     Active Substance: SULFASALAZINE
     Indication: POLYCHONDRITIS
     Dosage: 3 G DAILY
     Route: 065
     Dates: start: 2003

REACTIONS (2)
  - Polychondritis [Recovered/Resolved]
  - Drug ineffective [Unknown]
